FAERS Safety Report 11211165 (Version 1)
Quarter: 2015Q2

REPORT INFORMATION
  Report Type: Spontaneous
  Country: IT (occurrence: IT)
  Receive Date: 20150623
  Receipt Date: 20150623
  Transmission Date: 20150821
  Serious: Yes (Hospitalization, Other)
  Sender: FDA-Public Use
  Company Number: IT-ASTRAZENECA-2015SE60008

PATIENT
  Age: 15063 Day
  Sex: Female

DRUGS (4)
  1. DEPAKENE [Concomitant]
     Active Substance: VALPROIC ACID
  2. ENTACT [Suspect]
     Active Substance: ESCITALOPRAM OXALATE
     Route: 048
     Dates: start: 20150430, end: 20150430
  3. GESTODIOL [Suspect]
     Active Substance: ETHINYL ESTRADIOL\GESTODENE
     Dosage: 30 MCG +75 MCG, UNKNOWN
     Route: 048
     Dates: start: 20150430, end: 20150430
  4. SEROQUEL [Suspect]
     Active Substance: QUETIAPINE FUMARATE
     Route: 048
     Dates: start: 20150430, end: 20150430

REACTIONS (3)
  - Drug abuse [Recovering/Resolving]
  - Self injurious behaviour [Unknown]
  - Coma [Recovering/Resolving]

NARRATIVE: CASE EVENT DATE: 20150430
